FAERS Safety Report 6566654-9 (Version None)
Quarter: 2010Q1

REPORT INFORMATION
  Report Type: 
  Country: None (occurrence: None)
  Receive Date: 20100202
  Receipt Date: 20100122
  Transmission Date: 20100710
  Serious: Yes (Hospitalization, Other)
  Sender: FDA-Public Use
  Company Number: AU-ROCHE-680031

PATIENT
  Sex: Male
  Weight: 109 kg

DRUGS (6)
  1. ACTEMRA [Suspect]
     Indication: RHEUMATOID ARTHRITIS
     Dosage: FORM: INFUSION, DOSE: 864
     Route: 042
     Dates: start: 20091105
  2. ACTEMRA [Suspect]
     Dosage: DOSE: 864
     Route: 042
     Dates: start: 20091202
  3. ACTEMRA [Suspect]
     Dosage: DOSE: 864
     Route: 042
     Dates: start: 20091229, end: 20100121
  4. DIAMICRON [Concomitant]
     Dosage: DOSE: 30, FREQUENCY: DAILY
     Route: 048
     Dates: start: 20060101
  5. LIPITOR [Concomitant]
     Dosage: DOSE: 20, FREQUENCY: DAILY
     Route: 048
     Dates: start: 20070101
  6. ATENOLOL [Concomitant]
     Dosage: DOSE: 50, FREQUENCY: DAILY
     Route: 048
     Dates: start: 20070101

REACTIONS (11)
  - ANGIOEDEMA [None]
  - BLISTER [None]
  - DIZZINESS [None]
  - JOINT SWELLING [None]
  - LOSS OF CONSCIOUSNESS [None]
  - MOUTH ULCERATION [None]
  - ORAL PAIN [None]
  - PEMPHIGOID [None]
  - PRURITUS [None]
  - RENAL IMPAIRMENT [None]
  - TRACHEAL ULCER [None]
